FAERS Safety Report 16020744 (Version 1)
Quarter: 2019Q1

REPORT INFORMATION
  Report Type: Spontaneous
  Country: ES (occurrence: ES)
  Receive Date: 20190301
  Receipt Date: 20190301
  Transmission Date: 20190418
  Serious: Yes (Other)
  Sender: FDA-Public Use
  Company Number: ES-ACCORD-109770

PATIENT
  Age: 87 Year
  Sex: Female

DRUGS (1)
  1. QUETIAPINE. [Suspect]
     Active Substance: QUETIAPINE
     Indication: AGGRESSION
     Dosage: 1 TAB (FOR RESTLESSNESS) BEFORE GOING TO BED (23H), ON 24/07/2018 1 TAB EVERY 8 HOURS (9H-17H-01H)
     Route: 048
     Dates: start: 20180716, end: 20180726

REACTIONS (2)
  - Sedation complication [Unknown]
  - Paradoxical drug reaction [Unknown]

NARRATIVE: CASE EVENT DATE: 20180716
